FAERS Safety Report 5971737-8 (Version None)
Quarter: 2008Q4

REPORT INFORMATION
  Report Type: 
  Country: None (occurrence: None)
  Receive Date: 20081201
  Receipt Date: 20081125
  Transmission Date: 20090506
  Serious: Yes (Other)
  Sender: FDA-Public Use
  Company Number: US-BAYER-200812950BCC

PATIENT
  Age: 51 Year
  Sex: Female
  Weight: 84 kg

DRUGS (7)
  1. ASPIRIN [Suspect]
     Indication: DRUG USE FOR UNKNOWN INDICATION
     Dosage: TOTAL DAILY DOSE: 81 MG  UNIT DOSE: 81 MG
     Route: 048
     Dates: start: 20040101
  2. ASPIRIN [Suspect]
     Dates: start: 20080909
  3. ASPIRIN [Suspect]
     Indication: DRUG USE FOR UNKNOWN INDICATION
     Route: 048
     Dates: start: 20080601, end: 20080909
  4. LIPITOR [Concomitant]
     Dosage: TOTAL DAILY DOSE: 40 MG
  5. LIPITOR [Concomitant]
     Dosage: TOTAL DAILY DOSE: 60 MG
     Dates: start: 20080901
  6. EFFEXOR [Concomitant]
  7. PROTONIX [Concomitant]

REACTIONS (2)
  - BLOOD CHOLESTEROL INCREASED [None]
  - DIABETES MELLITUS [None]
